FAERS Safety Report 10558028 (Version 3)
Quarter: 2014Q4

REPORT INFORMATION
  Report Type: Spontaneous
  Country: IL (occurrence: IL)
  Receive Date: 20141031
  Receipt Date: 20141106
  Transmission Date: 20150529
  Serious: Yes (Hospitalization, Other)
  Sender: FDA-Public Use
  Company Number: PHHY2014IL140678

PATIENT
  Age: 10 Year
  Sex: Male

DRUGS (3)
  1. RITALIN [Suspect]
     Active Substance: METHYLPHENIDATE HYDROCHLORIDE
     Indication: ATTENTION DEFICIT/HYPERACTIVITY DISORDER
     Dosage: UNK
     Route: 065
     Dates: start: 2011
  2. FOCALIN [Suspect]
     Active Substance: DEXMETHYLPHENIDATE HYDROCHLORIDE
     Indication: ATTENTION DEFICIT/HYPERACTIVITY DISORDER
     Dosage: 7.5 MG
     Route: 065
     Dates: start: 2011
  3. FOCALIN [Suspect]
     Active Substance: DEXMETHYLPHENIDATE HYDROCHLORIDE
     Dosage: 10 MG
     Route: 065
     Dates: start: 2011

REACTIONS (7)
  - Bone density decreased [Unknown]
  - Spinal compression fracture [Unknown]
  - C-reactive protein increased [Unknown]
  - Osteopenia [Unknown]
  - Blood alkaline phosphatase increased [Unknown]
  - Osteoporosis [Unknown]
  - Back pain [Unknown]
